FAERS Safety Report 16114147 (Version 2)
Quarter: 2021Q2

REPORT INFORMATION
  Report Type: Spontaneous
  Country: US (occurrence: US)
  Receive Date: 20190325
  Receipt Date: 20210413
  Transmission Date: 20210716
  Serious: No
  Sender: FDA-Public Use
  Company Number: US-ALLERGAN-1852282US

PATIENT
  Sex: Male

DRUGS (3)
  1. LUMIGAN [Suspect]
     Active Substance: BIMATOPROST
     Indication: GLAUCOMA
     Dosage: UNKNOWN
     Route: 047
     Dates: start: 2008
  2. OTHER UNSPECIFIED MEDICATIONS FOR HER HEART [Concomitant]
     Indication: CARDIAC DISORDER
  3. SIMBRINZA [Concomitant]
     Active Substance: BRIMONIDINE TARTRATE\BRINZOLAMIDE

REACTIONS (2)
  - Arteriosclerosis [Unknown]
  - Accidental exposure to product [Unknown]

NARRATIVE: CASE EVENT DATE: 2014
